FAERS Safety Report 5745823-1 (Version None)
Quarter: 2008Q2

REPORT INFORMATION
  Report Type: 
  Country: None (occurrence: None)
  Receive Date: 20080520
  Receipt Date: 20080506
  Transmission Date: 20081010
  Serious: Yes (Other)
  Sender: FDA-Public Use
  Company Number: GXKR2006GB08454

PATIENT
  Age: 11 Year
  Sex: Female
  Weight: 31.8 kg

DRUGS (2)
  1. PIROXICAM [Suspect]
     Indication: CHEST PAIN
     Dosage: ORAL
     Route: 048
  2. IBUPROFEN [Suspect]

REACTIONS (3)
  - EYE INJURY [None]
  - EYE PAIN [None]
  - VISION BLURRED [None]
